FAERS Safety Report 23636807 (Version 5)
Quarter: 2024Q2

REPORT INFORMATION
  Report Type: Spontaneous
  Country: US (occurrence: US)
  Receive Date: 20240315
  Receipt Date: 20240628
  Transmission Date: 20240716
  Serious: Yes (Other)
  Sender: FDA-Public Use
  Company Number: US-PFIZER INC-202400064852

PATIENT
  Age: 66 Year
  Sex: Female
  Weight: 81.633 kg

DRUGS (12)
  1. HYDROCORTISONE [Suspect]
     Active Substance: HYDROCORTISONE\HYDROCORTISONE ACETATE
     Indication: Adrenal insufficiency
     Dosage: 15 MG IN THE MORNING AND 10 MG IN THE AFTERNOON
     Route: 048
     Dates: start: 2019
  2. HYDROCORTISONE [Suspect]
     Active Substance: HYDROCORTISONE\HYDROCORTISONE ACETATE
     Dosage: 10 MG AFTERNOON, 10 MG BEDTIME
     Dates: start: 20240303
  3. HYDROCORTISONE [Suspect]
     Active Substance: HYDROCORTISONE\HYDROCORTISONE ACETATE
     Dosage: 20 MG AM, 20 MG NOON, 20 MG AFTERNOON, 20 MG BEDTIME
     Dates: start: 20240304
  4. HYDROCORTISONE [Suspect]
     Active Substance: HYDROCORTISONE\HYDROCORTISONE ACETATE
     Dosage: 20 MG AT 7 AM,  20 MG MID MORNING, 20 MG AT 2 PM, 20 MG LATER IN AFTERNOON
     Dates: start: 20240305, end: 20240305
  5. FLUDROCORTISONE [FLUDROCORTISONE ACETATE] [Concomitant]
     Indication: Hormone replacement therapy
     Dosage: 0.05 MG, 1X/DAY (FLUDROCORTISONE-TEVA BRAND)
     Route: 048
     Dates: start: 2008
  6. FLUDROCORTISONE [FLUDROCORTISONE ACETATE] [Concomitant]
     Indication: Adrenal insufficiency
  7. LORAZEPAM [Concomitant]
     Active Substance: LORAZEPAM
     Indication: Anxiety
     Dosage: 1 MG, 2X/DAY
     Route: 048
     Dates: start: 2016
  8. SYNTHROID [Concomitant]
     Active Substance: LEVOTHYROXINE SODIUM
     Indication: Hypothyroidism
     Dosage: 50 UG, 1X/DAY
     Route: 048
     Dates: start: 1993
  9. SYNTHROID [Concomitant]
     Active Substance: LEVOTHYROXINE SODIUM
     Dosage: UNK
     Dates: start: 1995
  10. HYDROCORTISONE ACETATE [Concomitant]
     Active Substance: HYDROCORTISONE ACETATE
     Indication: Adrenal insufficiency
     Dosage: 15MG IN THE MORNING AND 10 MG IN THE AFTERNOON
     Route: 048
     Dates: start: 200508
  11. HYDROCORTISONE ACETATE [Concomitant]
     Active Substance: HYDROCORTISONE ACETATE
     Dosage: 15 MG
     Dates: start: 20240303
  12. HYDROCORTISONE ACETATE [Concomitant]
     Active Substance: HYDROCORTISONE ACETATE
     Dosage: 10 MG
     Dates: start: 20240305

REACTIONS (5)
  - Shoulder operation [Recovered/Resolved]
  - Drug ineffective [Unknown]
  - Blood potassium increased [Recovered/Resolved]
  - Asthenia [Recovered/Resolved]
  - Dizziness [Unknown]

NARRATIVE: CASE EVENT DATE: 20230911
